FAERS Safety Report 7381357-9 (Version None)
Quarter: 2011Q1

REPORT INFORMATION
  Report Type: 
  Country: None (occurrence: None)
  Receive Date: 20110323
  Receipt Date: 20110323
  Transmission Date: 20110831
  Serious: Yes (Hospitalization)
  Sender: FDA-Public Use
  Company Number: None

PATIENT
  Sex: Male
  Weight: 80 kg

DRUGS (3)
  1. CYCLOPHOSPHAMIDE [Suspect]
     Dosage: 1212 MG
  2. RITUXIMAB (MOAB C2B8 ANTI CD20, CHIMERIC) [Suspect]
     Dosage: 758 MG
  3. PENTOSTATIN [Suspect]
     Dosage: 8.1 MG

REACTIONS (5)
  - NIGHT SWEATS [None]
  - FATIGUE [None]
  - CHILLS [None]
  - COUGH [None]
  - DYSPNOEA [None]
